FAERS Safety Report 9360817 (Version 3)
Quarter: 2013Q3

REPORT INFORMATION
  Report Type: Spontaneous
  Country: CN (occurrence: CN)
  Receive Date: 20130621
  Receipt Date: 20130823
  Transmission Date: 20140515
  Serious: Yes (Other)
  Sender: FDA-Public Use
  Company Number: CN-SANOFI-AVENTIS-2013SA060629

PATIENT
  Age: 78 Year
  Sex: Female

DRUGS (4)
  1. LANTUS [Suspect]
     Indication: DIABETES MELLITUS
     Route: 058
     Dates: start: 2009
  2. LANTUS [Suspect]
     Indication: DIABETES MELLITUS
     Route: 058
  3. LANTUS [Suspect]
     Indication: DIABETES MELLITUS
     Route: 058
  4. NOVONORM [Concomitant]
     Indication: DIABETES MELLITUS

REACTIONS (4)
  - Atrial fibrillation [Recovered/Resolved]
  - Protein urine present [Recovering/Resolving]
  - Blood glucose increased [Recovering/Resolving]
  - Local swelling [Recovering/Resolving]
